FAERS Safety Report 9185308 (Version 7)
Quarter: 2014Q1

REPORT INFORMATION
  Report Type: Spontaneous
  Country: US (occurrence: US)
  Receive Date: 20130325
  Receipt Date: 20140311
  Transmission Date: 20141002
  Serious: Yes (Hospitalization)
  Sender: FDA-Public Use
  Company Number: US-BIOGENIDEC-2013BI025184

PATIENT
  Age: 62 Year
  Sex: Female

DRUGS (3)
  1. AVONEX [Suspect]
     Indication: MULTIPLE SCLEROSIS
     Route: 030
     Dates: start: 19990801, end: 20120320
  2. AVONEX [Suspect]
     Indication: MULTIPLE SCLEROSIS
     Route: 030
     Dates: start: 20130412, end: 20140114
  3. TYLENOL [Concomitant]
     Indication: PREMEDICATION

REACTIONS (23)
  - Fall [Recovered/Resolved]
  - Wrist fracture [Recovered/Resolved with Sequelae]
  - Joint injury [Recovered/Resolved]
  - Back disorder [Unknown]
  - Head injury [Recovered/Resolved]
  - Gait disturbance [Unknown]
  - Contusion [Recovered/Resolved]
  - Mobility decreased [Recovered/Resolved]
  - Meniscus injury [Recovered/Resolved]
  - Loss of control of legs [Recovered/Resolved]
  - Injury [Recovered/Resolved]
  - Multiple sclerosis [Recovered/Resolved]
  - Memory impairment [Recovered/Resolved]
  - Lower limb fracture [Recovered/Resolved]
  - Muscular weakness [Not Recovered/Not Resolved]
  - Neck pain [Not Recovered/Not Resolved]
  - Influenza like illness [Recovered/Resolved]
  - Feeling abnormal [Recovered/Resolved]
  - Pain [Recovered/Resolved]
  - Pyrexia [Recovered/Resolved]
  - Asthenia [Not Recovered/Not Resolved]
  - Headache [Not Recovered/Not Resolved]
  - Depression [Not Recovered/Not Resolved]
